FAERS Safety Report 6400533-2 (Version None)
Quarter: 2009Q4

REPORT INFORMATION
  Report Type: 
  Country: None (occurrence: None)
  Receive Date: 20091014
  Receipt Date: 20090930
  Transmission Date: 20100525
  Serious: Yes (Death)
  Sender: FDA-Public Use
  Company Number: NZ-MYLANLABS-2009S1017110

PATIENT
  Age: 3 Month
  Sex: Male

DRUGS (2)
  1. GENOX [Suspect]
     Indication: DRUG USE FOR UNKNOWN INDICATION
     Route: 015
     Dates: start: 20061123, end: 20070418
  2. TRASTUZUMAB [Suspect]
     Indication: DRUG USE FOR UNKNOWN INDICATION
     Route: 015
     Dates: start: 20061123, end: 20070418

REACTIONS (3)
  - DRUG EXPOSURE DURING PREGNANCY [None]
  - RENAL IMPAIRMENT [None]
  - RESPIRATORY DISORDER NEONATAL [None]
